FAERS Safety Report 8831849 (Version 1)
Quarter: 2012Q4

REPORT INFORMATION
  Report Type: Report from Study
  Country: BE (occurrence: BE)
  Receive Date: 20121009
  Receipt Date: 20121009
  Transmission Date: 20130627
  Serious: Yes (Other)
  Sender: FDA-Public Use
  Company Number: BE-ROCHE-1137927

PATIENT
  Age: 55 Year
  Sex: Female
  Weight: 60 kg

DRUGS (14)
  1. HERCEPTIN [Suspect]
     Indication: BREAST CANCER
     Dosage: Patient received 18 cycles
     Route: 042
     Dates: start: 200611, end: 200906
  2. HERCEPTIN [Suspect]
     Route: 042
     Dates: start: 200906, end: 201003
  3. HERCEPTIN [Suspect]
     Route: 042
     Dates: start: 201102, end: 201206
  4. XELODA [Suspect]
     Indication: BREAST CANCER
     Dosage: during 3 cycles.
     Route: 048
     Dates: start: 201003
  5. XELODA [Suspect]
     Dosage: during 3 cycles.
     Route: 048
     Dates: start: 201005
  6. XELODA [Suspect]
     Route: 048
     Dates: start: 201012, end: 201102
  7. CYCLOPHOSPHAMIDE [Suspect]
     Indication: BREAST CANCER
     Route: 042
  8. CYCLOPHOSPHAMIDE [Suspect]
     Route: 042
     Dates: start: 201202
  9. LAPATINIB [Suspect]
     Indication: BREAST CANCER
     Route: 042
     Dates: start: 201003
  10. VINORELBINE TARTRATE [Suspect]
     Indication: BREAST CANCER
     Route: 042
     Dates: start: 201105
  11. DOCETAXEL [Suspect]
     Indication: BREAST CANCER
     Route: 042
     Dates: start: 200609
  12. DOCETAXEL [Suspect]
     Route: 042
     Dates: start: 201202
  13. MEDROL [Concomitant]
  14. KEPPRA [Concomitant]

REACTIONS (4)
  - Disease progression [Unknown]
  - Clubbing [Unknown]
  - Palmar-plantar erythrodysaesthesia syndrome [Unknown]
  - Cardiac failure [Recovering/Resolving]
